FAERS Safety Report 12876416 (Version 3)
Quarter: 2018Q2

REPORT INFORMATION
  Report Type: Report from Study
  Country: DE (occurrence: DE)
  Receive Date: 20161024
  Receipt Date: 20180621
  Transmission Date: 20180711
  Serious: Yes (Death, Hospitalization, Other)
  Sender: FDA-Public Use
  Company Number: DE-PFIZER INC-2016468651

PATIENT
  Age: 78 Year
  Sex: Female

DRUGS (12)
  1. CALCIMAGON-D 3 [Concomitant]
     Dosage: 10 MG, 1X/DAY
     Dates: start: 20150707, end: 20160914
  2. AMLODIPINE [Concomitant]
     Active Substance: AMLODIPINE BESYLATE
     Dosage: 10 MG, EVERY DAY
     Dates: start: 20140101, end: 20160819
  3. AMLODIPINE BESILATE [Suspect]
     Active Substance: AMLODIPINE BESYLATE
     Dosage: UNK
     Dates: end: 20160819
  4. VALSARTAN. [Suspect]
     Active Substance: VALSARTAN
     Dosage: 160 MG, EVERY DAY
     Dates: start: 20160701, end: 20160819
  5. ALLOPURINOL. [Concomitant]
     Active Substance: ALLOPURINOL
     Dosage: 150 MG, 1X/DAY
     Dates: start: 20140801, end: 20160819
  6. METFORMIN [Concomitant]
     Active Substance: METFORMIN HYDROCHLORIDE
     Dosage: 500 MG, 1X/DAY
     Dates: start: 20140801, end: 20160914
  7. XIPAMIDE [Concomitant]
     Active Substance: XIPAMIDE
     Dosage: 10 MG, EVERY DAY
     Dates: start: 20140101
  8. AROMASIN [Suspect]
     Active Substance: EXEMESTANE
     Indication: BREAST CANCER METASTATIC
     Dosage: 25 MG, EVERY DAY
     Route: 048
     Dates: start: 20160721, end: 20160901
  9. NOVAMINSULFON [Suspect]
     Active Substance: METAMIZOLE
     Dosage: 500 MG, UP TO 4X 30 DROPS DAILY
     Dates: start: 20140826, end: 20160914
  10. CALCIUM [Concomitant]
     Active Substance: CALCIUM
     Dosage: UNK
  11. AFINITOR [Suspect]
     Active Substance: EVEROLIMUS
     Indication: BREAST CANCER METASTATIC
     Dosage: 5 MG, DAILY
     Route: 048
     Dates: start: 20160721, end: 20160901
  12. METOPROLOL. [Concomitant]
     Active Substance: METOPROLOL
     Dosage: 50 MG, 2X/DAY
     Dates: end: 20160914

REACTIONS (32)
  - Pulmonary arterial pressure abnormal [Unknown]
  - Fibrin D dimer increased [Unknown]
  - Heart valve incompetence [Unknown]
  - Orthopnoea [Unknown]
  - Acute myocardial infarction [Fatal]
  - Blood creatinine increased [Unknown]
  - Nausea [Unknown]
  - Pneumonia [Fatal]
  - Dyspnoea [Fatal]
  - Mitral valve sclerosis [Unknown]
  - Anaemia [Recovered/Resolved]
  - Activated partial thromboplastin time prolonged [Unknown]
  - Oedema [Unknown]
  - Blood creatine phosphokinase increased [Not Recovered/Not Resolved]
  - Blood lactate dehydrogenase increased [Unknown]
  - Asthenia [Not Recovered/Not Resolved]
  - Oedema peripheral [Unknown]
  - Lung infiltration [Fatal]
  - C-reactive protein increased [Fatal]
  - Stress cardiomyopathy [Not Recovered/Not Resolved]
  - Cardiac failure [Not Recovered/Not Resolved]
  - Aortic valve sclerosis [Unknown]
  - Blood calcium decreased [Unknown]
  - Pleural effusion [Unknown]
  - Troponin I increased [Unknown]
  - Hypotension [Recovered/Resolved]
  - Tachyarrhythmia [Unknown]
  - Cough [Unknown]
  - Platelet count decreased [Unknown]
  - Blood potassium decreased [Recovered/Resolved]
  - White blood cell count increased [Unknown]
  - Infection [Unknown]

NARRATIVE: CASE EVENT DATE: 20160819
